FAERS Safety Report 4796163-9 (Version None)
Quarter: 2005Q4

REPORT INFORMATION
  Report Type: 
  Country: None (occurrence: None)
  Receive Date: 20051007
  Receipt Date: 20050930
  Transmission Date: 20060501
  Serious: Yes (Life-Threatening)
  Sender: FDA-Public Use
  Company Number: TPA2005A01144

PATIENT
  Age: 67 Year
  Sex: Male

DRUGS (11)
  1. PIOGLITAZONE HCL [Suspect]
     Dosage: SEE IMAGE
     Route: 048
     Dates: start: 20050608, end: 20050819
  2. PIOGLITAZONE HCL [Suspect]
     Dosage: SEE IMAGE
     Route: 048
     Dates: start: 20041223
  3. CLOPIDOGREL BISULFATE [Concomitant]
  4. FLONASE [Concomitant]
  5. TYLENOL WITH CODEIINE (PANADEINE CO) [Concomitant]
  6. TYLENOL [Concomitant]
  7. ASPIRIN [Concomitant]
  8. PSEUDOEPHEDRINE (PSEUDOEPEDRINE) [Concomitant]
  9. CHLORPHENIRAMINE TAB [Concomitant]
  10. PROTONIX [Concomitant]
  11. ZOCOR [Concomitant]

REACTIONS (3)
  - DIZZINESS [None]
  - LUNG NEOPLASM MALIGNANT [None]
  - MYALGIA [None]
